FAERS Safety Report 7128822-7 (Version None)
Quarter: 2010Q4

REPORT INFORMATION
  Report Type: 
  Country: None (occurrence: None)
  Receive Date: 20101130
  Receipt Date: 20101117
  Transmission Date: 20110411
  Serious: Yes (Hospitalization, Other)
  Sender: FDA-Public Use
  Company Number: US-ASTRAZENECA-2009UW05138

PATIENT
  Age: 67 Year
  Sex: Male

DRUGS (4)
  1. TOPROL-XL [Suspect]
     Route: 048
  2. TOPROL-XL [Suspect]
     Route: 048
     Dates: start: 20080101, end: 20090101
  3. TOPROL-XL [Suspect]
     Route: 048
     Dates: start: 20100101
  4. CRESTOR [Concomitant]
     Route: 048
     Dates: start: 20100101

REACTIONS (5)
  - DRUG DOSE OMISSION [None]
  - STENT PLACEMENT [None]
  - VASCULAR GRAFT [None]
  - VASCULAR GRAFT COMPLICATION [None]
  - VASCULAR PSEUDOANEURYSM [None]
